FAERS Safety Report 5077388-4 (Version None)
Quarter: 2006Q3

REPORT INFORMATION
  Report Type: 
  Country: None (occurrence: None)
  Receive Date: 20060810
  Receipt Date: 20060205
  Transmission Date: 20061208
  Serious: No
  Sender: FDA-Public Use
  Company Number: US-GLAXOSMITHKLINE-A0592958A

PATIENT
  Age: 23 Year
  Sex: Female
  Weight: 48.6 kg

DRUGS (2)
  1. PAXIL [Suspect]
     Indication: DRUG USE FOR UNKNOWN INDICATION
     Dates: start: 20051201, end: 20060101
  2. LEXAPRO [Concomitant]
     Dates: start: 20060117, end: 20060215

REACTIONS (3)
  - PIGMENTATION DISORDER [None]
  - PRURITUS [None]
  - RASH [None]
